FAERS Safety Report 14253052 (Version 1)
Quarter: 2017Q4

REPORT INFORMATION
  Report Type: Spontaneous
  Country: US (occurrence: US)
  Receive Date: 20171205
  Receipt Date: 20171205
  Transmission Date: 20180321
  Serious: No
  Sender: FDA-Public Use
  Company Number: US-ASTRAZENECA-2017SF19811

PATIENT

DRUGS (1)
  1. PULMICORT FLEXHALER [Suspect]
     Active Substance: BUDESONIDE
     Dosage: UNKNOWN
     Route: 055

REACTIONS (5)
  - Dry eye [Unknown]
  - Dry mouth [Unknown]
  - Muscle spasms [Unknown]
  - Weight decreased [Unknown]
  - Dehydration [Unknown]
